FAERS Safety Report 5920977-2 (Version None)
Quarter: 2008Q4

REPORT INFORMATION
  Report Type: 
  Country: None (occurrence: None)
  Receive Date: 20081014
  Receipt Date: 20080930
  Transmission Date: 20090506
  Serious: Yes (Death)
  Sender: FDA-Public Use
  Company Number: MPS1-1000110

PATIENT
  Age: 46 Year
  Sex: Male
  Weight: 64 kg

DRUGS (4)
  1. ALDURAZYME [Suspect]
     Indication: MUCOPOLYSACCHARIDOSIS IS
     Dosage: 5500 IE, QW, INTRAVENOUS
     Route: 042
     Dates: start: 20040817, end: 20080805
  2. AMIODARONE HCL [Concomitant]
  3. MORPHINE [Concomitant]
  4. HALOPERIDOL [Concomitant]

REACTIONS (6)
  - BEDRIDDEN [None]
  - CONDITION AGGRAVATED [None]
  - DISEASE PROGRESSION [None]
  - PAIN [None]
  - REFUSAL OF TREATMENT BY PATIENT [None]
  - SPINAL COLUMN STENOSIS [None]
